FAERS Safety Report 6382543-7 (Version None)
Quarter: 2009Q3

REPORT INFORMATION
  Report Type: 
  Country: None (occurrence: None)
  Receive Date: 20090930
  Receipt Date: 20090922
  Transmission Date: 20100115
  Serious: Yes (Other)
  Sender: FDA-Public Use
  Company Number: A0808183A

PATIENT
  Age: 50 Year
  Sex: Female
  Weight: 130.9 kg

DRUGS (12)
  1. AVANDIA [Suspect]
     Dosage: 8MG PER DAY
     Route: 065
     Dates: start: 20050101
  2. AVANDAMET [Suspect]
     Dosage: 4MG UNKNOWN
     Route: 065
     Dates: start: 20060101
  3. BISOPROLOL FUMARATE [Concomitant]
  4. LOTREL [Concomitant]
  5. SINGULAIR [Concomitant]
  6. BUPROPION HCL [Concomitant]
  7. GLYBURIDE [Concomitant]
  8. HYZAAR [Concomitant]
  9. FUROSEMIDE [Concomitant]
  10. LEVSIN [Concomitant]
  11. POTASSIUM CHLORIDE [Concomitant]
  12. M.V.I. [Concomitant]

REACTIONS (1)
  - CEREBROVASCULAR ACCIDENT [None]
